FAERS Safety Report 8563347 (Version 2)
Quarter: 2012Q4

REPORT INFORMATION
  Report Type: 
  Country: US (occurrence: US)
  Receive Date: 20120515
  Receipt Date: 20121015
  Transmission Date: 20130627
  Serious: Yes (Other)
  Sender: FDA-Public Use
  Company Number: US-BAYER-2012-046464

PATIENT
  Age: 18 Year
  Sex: Female
  Weight: 68.03 kg

DRUGS (1)
  1. YAZ [Suspect]
     Indication: PREMENSTRUAL SYNDROME
     Dosage: UNK
     Dates: start: 2006, end: 2008

REACTIONS (9)
  - Gallbladder injury [None]
  - Gastrointestinal disorder [None]
  - Anxiety [None]
  - Emotional distress [None]
  - General physical health deterioration [None]
  - Pain [None]
  - Injury [None]
  - Anhedonia [None]
  - Pain [None]
